FAERS Safety Report 23934090 (Version 1)
Quarter: 2024Q2

REPORT INFORMATION
  Report Type: Spontaneous
  Country: AU (occurrence: AU)
  Receive Date: 20240603
  Receipt Date: 20240603
  Transmission Date: 20240716
  Serious: Yes (Hospitalization)
  Sender: FDA-Public Use
  Company Number: AU-JUBILANT CADISTA PHARMACEUTICALS-2024JUB00040

PATIENT
  Age: 28 Year
  Sex: Male

DRUGS (3)
  1. LOPERAMIDE HYDROCHLORIDE [Suspect]
     Active Substance: LOPERAMIDE HYDROCHLORIDE
     Dosage: 200 X 2 MG TABLETS DAILY
  2. LOPERAMIDE HYDROCHLORIDE [Suspect]
     Active Substance: LOPERAMIDE HYDROCHLORIDE
     Dosage: 80 X 2 MG
  3. PROMETHAZINE [Concomitant]
     Active Substance: PROMETHAZINE HYDROCHLORIDE
     Dosage: 100 MG, 1X/DAY, FOR MANY MONTHS

REACTIONS (8)
  - Faecaloma [Unknown]
  - Low cardiac output syndrome [Unknown]
  - Loss of consciousness [Recovered/Resolved]
  - Drug withdrawal syndrome [Recovering/Resolving]
  - Overdose [Recovered/Resolved]
  - Drug abuse [Unknown]
  - Torsade de pointes [Unknown]
  - Ventricular tachycardia [Recovered/Resolved]
